FAERS Safety Report 6248990-9 (Version None)
Quarter: 2009Q2

REPORT INFORMATION
  Report Type: 
  Country: None (occurrence: None)
  Receive Date: 20090625
  Receipt Date: 20090516
  Transmission Date: 20091009
  Serious: Yes (Death)
  Sender: FDA-Public Use
  Company Number: AE-2009-099

PATIENT
  Age: 69 Year
  Sex: Male

DRUGS (8)
  1. METFORMIN HCL [Suspect]
     Indication: DIABETES MELLITUS
     Dosage: 1000MG, BID, ORAL
     Route: 048
     Dates: start: 20090201, end: 20090512
  2. ASPIRIN [Concomitant]
  3. FUROSEMIDE [Concomitant]
  4. QUETIAPINE FUMARATE [Concomitant]
  5. FERROUS SUPHATE [Concomitant]
  6. RAMIPRIL [Concomitant]
  7. SIMVASTATIN [Concomitant]
  8. SPIRONOLACTONE [Concomitant]

REACTIONS (4)
  - ACIDOSIS [None]
  - BLOOD GLUCOSE INCREASED [None]
  - BODY TEMPERATURE DECREASED [None]
  - LEFT VENTRICULAR FAILURE [None]
